FAERS Safety Report 5247293-9 (Version None)
Quarter: 2007Q1

REPORT INFORMATION
  Report Type: 
  Country: None (occurrence: None)
  Receive Date: 20070227
  Receipt Date: 20070221
  Transmission Date: 20070707
  Serious: Yes (Death, Hospitalization)
  Sender: FDA-Public Use
  Company Number: PHRM2007DZ00872

PATIENT
  Sex: Male

DRUGS (2)
  1. CORTANCYL [Concomitant]
     Route: 048
     Dates: start: 20060101
  2. FORADIL [Suspect]
     Indication: ASTHMA
     Dates: start: 20050701

REACTIONS (3)
  - ASTHMA [None]
  - DEATH [None]
  - PLEURISY [None]
